FAERS Safety Report 12484000 (Version 1)
Quarter: 2016Q2

REPORT INFORMATION
  Report Type: Spontaneous
  Country: US (occurrence: None)
  Receive Date: 20160620
  Receipt Date: 20160620
  Transmission Date: 20160815
  Serious: Yes (Hospitalization)
  Sender: FDA-Public Use
  Company Number: None

PATIENT
  Age: 30 Year
  Sex: Male
  Weight: 113.4 kg

DRUGS (1)
  1. SOLU-MEDROL [Suspect]
     Active Substance: METHYLPREDNISOLONE SODIUM SUCCINATE
     Indication: HYPERSENSITIVITY
     Route: 030
     Dates: start: 20160616, end: 20160617

REACTIONS (4)
  - Urticaria [None]
  - Pharyngeal oedema [None]
  - Condition aggravated [None]
  - Swollen tongue [None]

NARRATIVE: CASE EVENT DATE: 20160617
